FAERS Safety Report 9098998 (Version 1)
Quarter: 2013Q1

REPORT INFORMATION
  Report Type: Spontaneous
  Country: US (occurrence: US)
  Receive Date: 20130213
  Receipt Date: 20130213
  Transmission Date: 20140127
  Serious: No
  Sender: FDA-Public Use
  Company Number: US-PFIZER INC-2013057765

PATIENT
  Age: 25 Year
  Sex: Female
  Weight: 104 kg

DRUGS (2)
  1. CHANTIX [Suspect]
     Indication: SMOKING CESSATION THERAPY
     Dosage: UNK
  2. RISPERIDONE [Concomitant]
     Indication: ANXIETY
     Dosage: 4 MG, 1X/DAY

REACTIONS (1)
  - Weight increased [Unknown]
